FAERS Safety Report 5273568-3 (Version None)
Quarter: 2007Q1

REPORT INFORMATION
  Report Type: 
  Country: None (occurrence: None)
  Receive Date: 20070320
  Receipt Date: 20070305
  Transmission Date: 20070707
  Serious: Yes (Hospitalization)
  Sender: FDA-Public Use
  Company Number: 15853

PATIENT
  Age: 82 Year
  Sex: Female

DRUGS (16)
  1. CYTARABINE [Suspect]
     Indication: ACUTE MYELOID LEUKAEMIA
     Dosage: 20 MG/M2 QD SC
     Route: 058
     Dates: start: 20061023
  2. SERTRALINE [Concomitant]
  3. VITAMIN B12 /00056201/ [Concomitant]
  4. ERGOCALCIFEROL [Concomitant]
  5. GABAPENTIN [Concomitant]
  6. MONOPRIL [Concomitant]
  7. MEGAFOL [Concomitant]
  8. LIPITOR /01326101/. MFR:  NOT SPECIFIED [Concomitant]
  9. FOSAMAX. MFR:  NOT SPECIFIED [Concomitant]
  10. BETAMIN /00056102/. MFR:  NOT SPECIFIED [Concomitant]
  11. BETAGAN. MFR:  NOT SPECIFIED [Concomitant]
  12. GLUCOSAMINE [Concomitant]
  13. MAGNESIUM [Concomitant]
  14. ALLOPURINOL [Concomitant]
  15. METAMUCIL /00091301/ [Concomitant]
  16. IMODIUM /00384302/. MFR:  NOT SPECIFIED [Concomitant]

REACTIONS (4)
  - ABASIA [None]
  - CHONDROCALCINOSIS PYROPHOSPHATE [None]
  - PAIN IN EXTREMITY [None]
  - VASCULAR CALCIFICATION [None]
